FAERS Safety Report 7682914-2 (Version None)
Quarter: 2011Q3

REPORT INFORMATION
  Report Type: 
  Country: None (occurrence: None)
  Receive Date: 20110815
  Receipt Date: 20110808
  Transmission Date: 20111222
  Serious: Yes (Other)
  Sender: FDA-Public Use
  Company Number: AU-ROCHE-795598

PATIENT
  Sex: Female

DRUGS (8)
  1. ALCOHOL [Suspect]
     Dosage: DOSE:UNSPECIFIED
     Route: 065
  2. ZOLPIDEM [Suspect]
     Route: 065
  3. TEMAZEPAM [Suspect]
     Route: 065
  4. OXAZEPAM [Suspect]
     Route: 065
  5. DIAZEPAM [Suspect]
     Route: 048
  6. CODEINE SUL TAB [Suspect]
     Route: 065
  7. VENLAFAXINE HYDROCHLORIDE [Suspect]
     Route: 065
  8. MORPHINE HCL ELIXIR [Suspect]
     Route: 065

REACTIONS (2)
  - OVERDOSE [None]
  - ROAD TRAFFIC ACCIDENT [None]
